FAERS Safety Report 8699223 (Version 3)
Quarter: 2012Q4

REPORT INFORMATION
  Report Type: 
  Country: GB (occurrence: GB)
  Receive Date: 20120802
  Receipt Date: 20121030
  Transmission Date: 20130627
  Serious: Yes (Death, Hospitalization)
  Sender: FDA-Public Use
  Company Number: PHFR2012GB004258

PATIENT
  Age: 50 Year
  Sex: Female

DRUGS (5)
  1. CLOZARIL [Suspect]
     Indication: SCHIZOPHRENIA
     Route: 048
     Dates: start: 20010701
  2. CLOZARIL [Suspect]
     Dosage: 450 UKN, UNK
     Route: 048
  3. DOSULEPIN [Concomitant]
     Indication: DEPRESSIVE SYMPTOM
     Dosage: 250 UKN, UNK
     Route: 048
  4. ZOLDEN [Concomitant]
     Indication: INSOMNIA
     Dosage: 10 UKN, UNK
     Route: 048
  5. DIAZEPAM [Concomitant]
     Indication: ANXIETY
     Dosage: 2 mg, PRN
     Route: 048

REACTIONS (12)
  - Brain injury [Fatal]
  - Clostridium difficile colitis [Fatal]
  - Pulmonary embolism [Fatal]
  - Dehydration [Unknown]
  - Renal failure acute [Unknown]
  - Vomiting [Unknown]
  - Cardiomyopathy [Unknown]
  - Cardiac arrest [Unknown]
  - Circulatory collapse [Unknown]
  - General physical condition abnormal [Unknown]
  - White blood cell count increased [Unknown]
  - Neutrophil count increased [Unknown]
